FAERS Safety Report 7278346-1 (Version None)
Quarter: 2011Q1

REPORT INFORMATION
  Report Type: 
  Country: None (occurrence: None)
  Receive Date: 20110207
  Receipt Date: 20110124
  Transmission Date: 20110831
  Serious: Yes (Hospitalization)
  Sender: FDA-Public Use
  Company Number: SG-RANBAXY-2011RR-41512

PATIENT
  Sex: Female

DRUGS (2)
  1. ARIPIPRAZOLE [Concomitant]
  2. RISPERIDONE [Suspect]
     Indication: SCHIZOPHRENIA
     Dosage: 6 MG, UNK

REACTIONS (1)
  - PITUITARY TUMOUR BENIGN [None]
